FAERS Safety Report 5725186-8 (Version None)
Quarter: 2008Q2

REPORT INFORMATION
  Report Type: 
  Country: None (occurrence: None)
  Receive Date: 20080501
  Receipt Date: 20080428
  Transmission Date: 20081010
  Serious: Yes (Other)
  Sender: FDA-Public Use
  Company Number: A0725074A

PATIENT
  Age: 79 Year
  Sex: Male

DRUGS (5)
  1. AVODART [Suspect]
     Indication: BENIGN PROSTATIC HYPERPLASIA
     Dosage: .5MG PER DAY
     Route: 048
     Dates: start: 20080420
  2. COREG [Suspect]
     Indication: ATRIAL FIBRILLATION
     Dosage: 12.5MG TWICE PER DAY
     Route: 048
     Dates: start: 20060401
  3. ASPIRIN [Concomitant]
  4. NEXIUM [Concomitant]
  5. COUMADIN [Concomitant]

REACTIONS (4)
  - ASTHMA [None]
  - COUGH [None]
  - INTERNATIONAL NORMALISED RATIO INCREASED [None]
  - PROTHROMBIN TIME PROLONGED [None]
